FAERS Safety Report 6820012-8 (Version None)
Quarter: 2010Q3

REPORT INFORMATION
  Report Type: 
  Country: None (occurrence: None)
  Receive Date: 20100707
  Receipt Date: 20100630
  Transmission Date: 20110219
  Serious: Yes (Death, Hospitalization, Other)
  Sender: FDA-Public Use
  Company Number: AR-ELI_LILLY_AND_COMPANY-AR201005007733

PATIENT
  Age: 67 Year
  Sex: Male
  Weight: 95 kg

DRUGS (5)
  1. ALIMTA [Suspect]
     Dosage: UNK, UNKNOWN
     Route: 042
     Dates: start: 20091020
  2. METHADONE [Concomitant]
     Dosage: UNK, UNKNOWN
     Route: 065
  3. FOLIC ACID [Concomitant]
     Dates: start: 20091021
  4. VITAMIN B-12 [Concomitant]
     Dosage: UNK, UNKNOWN
     Route: 065
     Dates: start: 20091021
  5. DIURETICS [Concomitant]
     Dosage: UNK, UNKNOWN
     Route: 065

REACTIONS (10)
  - BLOOD CREATININE INCREASED [None]
  - BLOOD URINE PRESENT [None]
  - COUGH [None]
  - DEATH [None]
  - DEHYDRATION [None]
  - FATIGUE [None]
  - NEUTROPENIA [None]
  - RENAL NEOPLASM [None]
  - THROMBOSIS [None]
  - URINARY RETENTION [None]
